FAERS Safety Report 8617100-2 (Version None)
Quarter: 2012Q3

REPORT INFORMATION
  Report Type: 
  Country: None (occurrence: None)
  Receive Date: 20120823
  Receipt Date: 20120817
  Transmission Date: 20120928
  Serious: No
  Sender: FDA-Public Use
  Company Number: US-PFIZER INC-2012172208

PATIENT
  Age: 55 Year
  Sex: Female
  Weight: 81.633 kg

DRUGS (5)
  1. FENOFIBRATE [Concomitant]
     Indication: BLOOD CHOLESTEROL INCREASED
     Dosage: 160 MG, 1X/DAY
  2. ATENOLOL [Concomitant]
     Indication: HYPERTENSION
     Dosage: 25 MG, 1X/DAY
  3. PREMARIN [Suspect]
     Indication: VULVOVAGINAL DRYNESS
     Dosage: 0.625 MG, 1X/DAY
     Route: 067
     Dates: start: 20120629
  4. PRAVASTATIN [Concomitant]
     Indication: BLOOD CHOLESTEROL INCREASED
     Dosage: 80 MG, 1X/DAY
  5. PREMARIN [Suspect]
     Dosage: UNK, 1X/DAY
     Route: 067
     Dates: end: 20120713

REACTIONS (4)
  - PSYCHIATRIC SYMPTOM [None]
  - ALOPECIA [None]
  - NERVOUSNESS [None]
  - PANIC ATTACK [None]
